FAERS Safety Report 9499949 (Version 1)
Quarter: 2013Q1

REPORT INFORMATION
  Report Type: Spontaneous
  Country: US (occurrence: None)
  Receive Date: 20130107
  Receipt Date: 20130107
  Transmission Date: 20140127
  Serious: No
  Sender: FDA-Public Use
  Company Number: PHEH2012US021831

PATIENT
  Age: 60 Year
  Sex: Female

DRUGS (8)
  1. GILENYA [Suspect]
     Indication: MULTIPLE SCLEROSIS
     Route: 048
     Dates: start: 20121101, end: 20121101
  2. BLACKMORES VITAMIN D3 (COLECALCIFEROL) [Concomitant]
  3. ACICAL/CALCIUM CARBONATE (CALCIUM CARBONATE) [Concomitant]
  4. VITAMIN B12 (CYANOCOBALAMIN) [Concomitant]
  5. WELLBUTRIN (BUPROPION HYDROCHLORIDE) [Concomitant]
  6. AMPYRA (FAMPRIDOINE) [Concomitant]
  7. LEXAPRO (ESCITALOPRAM OXALATE) [Concomitant]
  8. HYDROCHLOROTHIAZIDE (HYDROCHLOROTHIAZIDE) [Concomitant]

REACTIONS (2)
  - Feeling cold [None]
  - Vision blurred [None]
